FAERS Safety Report 4314021-0 (Version None)
Quarter: 2004Q1

REPORT INFORMATION
  Report Type: 
  Country: None (occurrence: None)
  Receive Date: 20040305
  Receipt Date: 20040224
  Transmission Date: 20041129
  Serious: No
  Sender: FDA-Public Use
  Company Number: 04P-167-0251666-00

PATIENT
  Sex: Male

DRUGS (5)
  1. VALPROATE SODIUM [Suspect]
     Indication: AFFECTIVE DISORDER
     Dosage: 1500 MG, 1 IN 1 D
     Dates: start: 20030901
  2. OLANZAPINE [Concomitant]
  3. NITRAZEPAM [Concomitant]
  4. DISULFIRAM [Concomitant]
  5. VENLAFAXINE [Concomitant]

REACTIONS (1)
  - GRAND MAL CONVULSION [None]
